FAERS Safety Report 5515746-1 (Version None)
Quarter: 2007Q4

REPORT INFORMATION
  Report Type: 
  Country: None (occurrence: None)
  Receive Date: 20071114
  Receipt Date: 20071108
  Transmission Date: 20080405
  Serious: Yes (Other)
  Sender: FDA-Public Use
  Company Number: PHNU2007DE03729

PATIENT
  Sex: Female

DRUGS (4)
  1. ZOMETA [Suspect]
     Indication: METASTASES TO BONE
     Dosage: 4 MG, QMO
     Route: 042
     Dates: start: 20030101
  2. AREDIA [Suspect]
     Indication: METASTASES TO BONE
     Dosage: 90 MG, Q3MO
     Route: 042
     Dates: start: 19980101, end: 20030101
  3. DECORTIN [Concomitant]
     Indication: RHEUMATOID ARTHRITIS
  4. ANTIRHEUMATIC [Concomitant]

REACTIONS (7)
  - NEPHRECTOMY [None]
  - ORAL SURGERY [None]
  - OSTEONECROSIS [None]
  - PLASTIC SURGERY [None]
  - RENAL CELL CARCINOMA STAGE UNSPECIFIED [None]
  - SURGERY [None]
  - TOOTH EXTRACTION [None]
